FAERS Safety Report 5056126-5 (Version None)
Quarter: 2006Q3

REPORT INFORMATION
  Report Type: 
  Country: None (occurrence: None)
  Receive Date: 20060720
  Receipt Date: 20060601
  Transmission Date: 20061208
  Serious: Yes (Disabling)
  Sender: FDA-Public Use
  Company Number: CA-GLAXOSMITHKLINE-A0607955A

PATIENT
  Age: 47 Year
  Sex: Male

DRUGS (8)
  1. AVANDIA [Suspect]
     Dosage: 4MG PER DAY
     Route: 048
     Dates: start: 20030721, end: 20050101
  2. GLUCONORM [Concomitant]
     Dosage: 1MG THREE TIMES PER DAY
  3. METFORMIN [Concomitant]
     Dosage: 850MG THREE TIMES PER DAY
  4. MONOPRIL [Concomitant]
     Dosage: 20MG PER DAY
  5. PLAVIX [Concomitant]
     Dosage: 75MG PER DAY
  6. CIALIS [Concomitant]
  7. AMLODIPINE [Concomitant]
     Dosage: 5MG PER DAY
  8. ZOCOR [Concomitant]
     Dosage: 40MG PER DAY

REACTIONS (5)
  - BLINDNESS [None]
  - BLINDNESS UNILATERAL [None]
  - DIABETIC RETINOPATHY [None]
  - MACULAR OEDEMA [None]
  - VISUAL ACUITY REDUCED [None]
